FAERS Safety Report 16471641 (Version 2)
Quarter: 2020Q1

REPORT INFORMATION
  Report Type: Spontaneous
  Country: CA (occurrence: CA)
  Receive Date: 20190624
  Receipt Date: 20200115
  Transmission Date: 20200409
  Serious: Yes (Other)
  Sender: FDA-Public Use
  Company Number: CA-SAMSUNG BIOEPIS-SB-2019-15600

PATIENT
  Age: 45 Year
  Sex: Female
  Weight: 56 kg

DRUGS (1)
  1. INFLIXIMAB [Suspect]
     Active Substance: INFLIXIMAB
     Indication: CROHN^S DISEASE
     Route: 042

REACTIONS (8)
  - Lower respiratory tract infection [Unknown]
  - Pharyngitis [Unknown]
  - Weight increased [Unknown]
  - Off label use [Unknown]
  - Nasopharyngitis [Unknown]
  - Weight decreased [Unknown]
  - Oropharyngeal pain [Unknown]
  - Product use issue [Unknown]
